FAERS Safety Report 6089322-9 (Version None)
Quarter: 2009Q1

REPORT INFORMATION
  Report Type: 
  Country: None (occurrence: None)
  Receive Date: 20090219
  Receipt Date: 20090203
  Transmission Date: 20090719
  Serious: Yes (Hospitalization)
  Sender: FDA-Public Use
  Company Number: 000293

PATIENT
  Age: 37 Year
  Sex: Male

DRUGS (5)
  1. LACOSAMIDE [Suspect]
     Indication: EPILEPSY
     Dosage: TABLET, 300 MG BID, ORAL
     Route: 048
     Dates: start: 20020214
  2. LEVETIRACETAM [Concomitant]
  3. PREGABALIN (PREGABALIN) [Concomitant]
  4. OXCARBAZEPINE [Concomitant]
  5. VALPROIC ACID [Concomitant]

REACTIONS (20)
  - ANTICONVULSANT DRUG LEVEL INCREASED [None]
  - ASPARTATE AMINOTRANSFERASE INCREASED [None]
  - BLOOD GLUCOSE INCREASED [None]
  - BLOOD UREA INCREASED [None]
  - CARBON DIOXIDE DECREASED [None]
  - DEHYDRATION [None]
  - GASTRITIS [None]
  - GASTROENTERITIS VIRAL [None]
  - HYPOPHAGIA [None]
  - HYPOTENSION [None]
  - LYMPHOCYTE COUNT INCREASED [None]
  - MEAN PLATELET VOLUME INCREASED [None]
  - MONOCYTE PERCENTAGE INCREASED [None]
  - NAUSEA [None]
  - NEUTROPHIL PERCENTAGE INCREASED [None]
  - PYREXIA [None]
  - RED BLOOD CELL COUNT DECREASED [None]
  - SINUS CONGESTION [None]
  - UPPER RESPIRATORY TRACT INFECTION [None]
  - VOMITING [None]
